FAERS Safety Report 7224717-9 (Version None)
Quarter: 2011Q1

REPORT INFORMATION
  Report Type: 
  Country: None (occurrence: None)
  Receive Date: 20110104
  Receipt Date: 20101228
  Transmission Date: 20110831
  Serious: Yes (Hospitalization)
  Sender: FDA-Public Use
  Company Number: CIP10003045

PATIENT
  Age: 81 Year
  Sex: Female

DRUGS (7)
  1. BLOPRESS (CANDESARTAN CILEXETIL) [Concomitant]
  2. PRAVASTATIN [Concomitant]
  3. BENET (RISEDRONATE SODIUM) TABLET, 2.5MG [Suspect]
     Indication: OSTEOPOROSIS
     Dosage: 2.5 MG DAILY, ORAL
     Route: 048
     Dates: end: 20101101
  4. CARNACULIN /00088101/ (KALLIDINOGENASE) [Concomitant]
  5. CALBLOCK (AZELNIDIPINE) [Concomitant]
  6. ROCALTROL [Concomitant]
  7. INDAPAMIDE [Concomitant]

REACTIONS (2)
  - OSTEOSCLEROSIS [None]
  - FEMUR FRACTURE [None]
